FAERS Safety Report 4686113-8 (Version None)
Quarter: 2005Q2

REPORT INFORMATION
  Report Type: 
  Country: None (occurrence: None)
  Receive Date: 20050603
  Receipt Date: 20050530
  Transmission Date: 20051028
  Serious: Yes (Hospitalization)
  Sender: FDA-Public Use
  Company Number: ITWYE694925MAY05

PATIENT
  Age: 58 Year
  Sex: Female

DRUGS (1)
  1. RAPAMUNE [Suspect]
     Indication: PROPHYLAXIS AGAINST TRANSPLANT REJECTION
     Dosage: 0.5 MG 1X PER 1 DAY, ORAL
     Route: 048
     Dates: start: 20050302

REACTIONS (1)
  - COMPLICATIONS OF TRANSPLANTED KIDNEY [None]
